FAERS Safety Report 5277813-X (Version None)
Quarter: 2007Q1

REPORT INFORMATION
  Report Type: 
  Country: None (occurrence: None)
  Receive Date: 20070321
  Receipt Date: 20070315
  Transmission Date: 20070707
  Serious: Yes (Hospitalization, Disabling, Other)
  Sender: FDA-Public Use
  Company Number: 236343

PATIENT
  Age: 50 Year
  Sex: Male
  Weight: 138.3 kg

DRUGS (3)
  1. XOLAIR [Suspect]
     Indication: ASTHMA
     Dosage: 450 MG, Q2W, SUBCUTANEOUS
     Route: 058
     Dates: start: 20040120, end: 20070118
  2. ADVAIR DISKUS 100/50 [Concomitant]
  3. ALBUTEROL (ALBUTEROL/ALBUTEROL SULFATE) [Concomitant]

REACTIONS (3)
  - CARDIOMYOPATHY [None]
  - NEPHROPATHY [None]
  - VIRAL INFECTION [None]
